FAERS Safety Report 16980224 (Version 4)
Quarter: 2020Q3

REPORT INFORMATION
  Report Type: Spontaneous
  Country: US (occurrence: US)
  Receive Date: 20191031
  Receipt Date: 20200918
  Transmission Date: 20201102
  Serious: No
  Sender: FDA-Public Use
  Company Number: US-PFIZER INC-2017551319

PATIENT
  Age: 68 Year
  Sex: Male

DRUGS (1)
  1. LYRICA [Suspect]
     Active Substance: PREGABALIN
     Indication: DIABETIC NEUROPATHY
     Dosage: 300 MG, 4X/DAY
     Route: 048
     Dates: start: 201809

REACTIONS (2)
  - Prescribed overdose [Unknown]
  - Pain [Unknown]

NARRATIVE: CASE EVENT DATE: 201809
